FAERS Safety Report 6885237-4 (Version None)
Quarter: 2010Q3

REPORT INFORMATION
  Report Type: 
  Country: None (occurrence: None)
  Receive Date: 20100729
  Receipt Date: 20080103
  Transmission Date: 20110219
  Serious: Yes (Other)
  Sender: FDA-Public Use
  Company Number: US-PFIZER INC-2008001126

PATIENT

DRUGS (1)
  1. CELEBREX [Suspect]

REACTIONS (2)
  - BLOOD URINE PRESENT [None]
  - DRUG ADMINISTRATION ERROR [None]
